FAERS Safety Report 19472242 (Version 1)
Quarter: 2021Q2

REPORT INFORMATION
  Report Type: Spontaneous
  Country: US (occurrence: US)
  Receive Date: 20210629
  Receipt Date: 20210629
  Transmission Date: 20210717
  Serious: No
  Sender: FDA-Public Use
  Company Number: None

PATIENT
  Age: 66 Year
  Sex: Male
  Weight: 89.1 kg

DRUGS (11)
  1. VITAMIN B12 1500MCG [Concomitant]
  2. LIPITOR 80MG [Concomitant]
  3. COREG 25MG [Concomitant]
  4. LISINOPRIL?HYDROCHLOROTHIAZIDE 20?25MG [Concomitant]
  5. CLONAZEPAM 0.5MG [Concomitant]
     Active Substance: CLONAZEPAM
  6. VITAMIN D 25 MCG [Concomitant]
  7. MAGNESIUM OXIDE 400MG [Concomitant]
     Active Substance: MAGNESIUM OXIDE
  8. XARELTO [Concomitant]
     Active Substance: RIVAROXABAN
  9. ASPIRIN 81MG [Concomitant]
     Active Substance: ASPIRIN
  10. INLYTA [Suspect]
     Active Substance: AXITINIB
     Indication: RENAL CANCER
     Route: 048
     Dates: start: 20201104, end: 20210628
  11. MOBIC [Concomitant]
     Active Substance: MELOXICAM

REACTIONS (1)
  - Drug ineffective [None]

NARRATIVE: CASE EVENT DATE: 20210628
